FAERS Safety Report 5618675-8 (Version None)
Quarter: 2008Q1

REPORT INFORMATION
  Report Type: 
  Country: None (occurrence: None)
  Receive Date: 20080205
  Receipt Date: 20080205
  Transmission Date: 20080703
  Serious: No
  Sender: FDA-Public Use
  Company Number: None

PATIENT
  Age: 57 Year
  Sex: Male
  Weight: 90.7194 kg

DRUGS (7)
  1. VYTORIN [Suspect]
     Indication: BLOOD CHOLESTEROL INCREASED
     Dosage: 1 TABLET 1 DAILY PO
     Route: 048
     Dates: start: 20071111, end: 20080202
  2. PLAVIX [Concomitant]
  3. PROTONIX [Concomitant]
  4. METOPROLOL TARTRATE [Concomitant]
  5. KLONOPIN [Concomitant]
  6. CARDURA [Concomitant]
  7. AMBIEN - ZOLIDEM TARTRATE [Concomitant]

REACTIONS (5)
  - DISCOMFORT [None]
  - NERVOUS SYSTEM DISORDER [None]
  - PAIN [None]
  - PARAESTHESIA [None]
  - SENSORY DISTURBANCE [None]
